FAERS Safety Report 6104200-4 (Version None)
Quarter: 2009Q1

REPORT INFORMATION
  Report Type: 
  Country: None (occurrence: None)
  Receive Date: 20090305
  Receipt Date: 20090220
  Transmission Date: 20090719
  Serious: Yes (Other)
  Sender: FDA-Public Use
  Company Number: PHHY2009BR06135

PATIENT
  Sex: Male

DRUGS (2)
  1. FORASEQ [Suspect]
     Dosage: 1 DF, BID
  2. FORASEQ [Suspect]
     Dosage: 1 DF, TID

REACTIONS (7)
  - ANXIETY [None]
  - ASTHENIA [None]
  - DYSPNOEA [None]
  - FEAR [None]
  - INCORRECT DOSE ADMINISTERED [None]
  - MUSCULAR WEAKNESS [None]
  - PAIN IN EXTREMITY [None]
